FAERS Safety Report 21335892 (Version 4)
Quarter: 2024Q3

REPORT INFORMATION
  Report Type: Spontaneous
  Country: CA (occurrence: CA)
  Receive Date: 20220915
  Receipt Date: 20240821
  Transmission Date: 20241017
  Serious: Yes (Hospitalization, Other)
  Sender: AUROBINDO
  Company Number: CA-AUROBINDO-AUR-APL-2022-033793

PATIENT
  Age: 55 Year
  Sex: Male

DRUGS (35)
  1. BUSPIRONE HYDROCHLORIDE [Suspect]
     Active Substance: BUSPIRONE HYDROCHLORIDE
     Indication: Psychotic disorder
     Dosage: 60 MILLIGRAM
     Route: 065
  2. BUSPIRONE HYDROCHLORIDE [Suspect]
     Active Substance: BUSPIRONE HYDROCHLORIDE
     Indication: Schizoaffective disorder bipolar type
  3. BUSPIRONE HYDROCHLORIDE [Suspect]
     Active Substance: BUSPIRONE HYDROCHLORIDE
     Indication: Obsessive-compulsive disorder
  4. CLOZAPINE [Suspect]
     Active Substance: CLOZAPINE
     Indication: Psychotic disorder
     Dosage: 625 MILLIGRAM, ONCE A DAY
     Route: 065
  5. CLOZAPINE [Suspect]
     Active Substance: CLOZAPINE
     Indication: Schizoaffective disorder bipolar type
     Dosage: 150 MILLIGRAM, ONCE A DAY
     Route: 065
  6. CLOZAPINE [Suspect]
     Active Substance: CLOZAPINE
     Indication: Obsessive-compulsive disorder
  7. FLUOXETINE [Suspect]
     Active Substance: FLUOXETINE HYDROCHLORIDE
     Indication: Obsessive-compulsive disorder
     Dosage: 60 MILLIGRAM
     Route: 065
  8. FLUOXETINE [Suspect]
     Active Substance: FLUOXETINE HYDROCHLORIDE
     Indication: Schizoaffective disorder bipolar type
  9. FLUOXETINE [Suspect]
     Active Substance: FLUOXETINE HYDROCHLORIDE
     Indication: Psychotic disorder
  10. DEPAKOTE [Suspect]
     Active Substance: DIVALPROEX SODIUM
     Indication: Psychotic disorder
     Dosage: 1500 MILLIGRAM
     Route: 065
  11. DEPAKOTE [Suspect]
     Active Substance: DIVALPROEX SODIUM
     Indication: Schizoaffective disorder bipolar type
  12. DEPAKOTE [Suspect]
     Active Substance: DIVALPROEX SODIUM
     Indication: Obsessive-compulsive disorder
  13. DIVALPROEX SODIUM [Suspect]
     Active Substance: DIVALPROEX SODIUM
     Indication: Schizoaffective disorder bipolar type
     Dosage: 1500 MILLIGRAM
     Route: 065
  14. FLUVOXAMINE [Suspect]
     Active Substance: FLUVOXAMINE
     Indication: Psychotic disorder
     Dosage: 200 MILLIGRAM, ONCE A DAY
     Route: 065
  15. FLUVOXAMINE [Suspect]
     Active Substance: FLUVOXAMINE
     Indication: Schizoaffective disorder bipolar type
  16. FLUVOXAMINE [Suspect]
     Active Substance: FLUVOXAMINE
     Indication: Obsessive-compulsive disorder
  17. OXAZEPAM [Suspect]
     Active Substance: OXAZEPAM
     Indication: Psychotic disorder
     Dosage: 20 MILLIGRAM
     Route: 065
  18. OXAZEPAM [Suspect]
     Active Substance: OXAZEPAM
     Indication: Schizoaffective disorder bipolar type
  19. OXAZEPAM [Suspect]
     Active Substance: OXAZEPAM
     Indication: Obsessive-compulsive disorder
  20. PROCYCLIDINE [Suspect]
     Active Substance: PROCYCLIDINE
     Indication: Schizoaffective disorder bipolar type
     Dosage: UNK
     Route: 065
  21. PROCYCLIDINE [Suspect]
     Active Substance: PROCYCLIDINE
     Indication: Psychotic disorder
  22. PROCYCLIDINE [Suspect]
     Active Substance: PROCYCLIDINE
     Indication: Obsessive-compulsive disorder
  23. DIVALPROEX SODIUM [Suspect]
     Active Substance: DIVALPROEX SODIUM
     Indication: Schizoaffective disorder bipolar type
     Dosage: UNK
     Route: 065
  24. DIVALPROEX SODIUM [Suspect]
     Active Substance: DIVALPROEX SODIUM
     Indication: Psychotic disorder
     Dosage: 1500 MILLIGRAM
     Route: 065
  25. DIVALPROEX SODIUM [Suspect]
     Active Substance: DIVALPROEX SODIUM
     Indication: Obsessive-compulsive disorder
  26. ZOPICLONE [Suspect]
     Active Substance: ZOPICLONE
     Indication: Psychotic disorder
     Dosage: 15 MILLIGRAM
     Route: 065
  27. ZOPICLONE [Suspect]
     Active Substance: ZOPICLONE
     Indication: Schizoaffective disorder bipolar type
  28. ZOPICLONE [Suspect]
     Active Substance: ZOPICLONE
     Indication: Obsessive-compulsive disorder
  29. ZUCLOPENTHIXOL DECANOATE [Suspect]
     Active Substance: ZUCLOPENTHIXOL DECANOATE
     Indication: Schizoaffective disorder bipolar type
     Dosage: 450 MILLIGRAM, EVERY WEEK
     Route: 065
  30. ZUCLOPENTHIXOL DECANOATE [Suspect]
     Active Substance: ZUCLOPENTHIXOL DECANOATE
     Indication: Psychotic disorder
  31. ZUCLOPENTHIXOL DECANOATE [Suspect]
     Active Substance: ZUCLOPENTHIXOL DECANOATE
     Indication: Obsessive-compulsive disorder
  32. CLONAZEPAM [Concomitant]
     Active Substance: CLONAZEPAM
     Indication: Product used for unknown indication
     Dosage: UNK
     Route: 065
  33. LOXAPINE [Concomitant]
     Active Substance: LOXAPINE
     Indication: Product used for unknown indication
     Dosage: UNK
     Route: 065
  34. QUETIAPINE [Concomitant]
     Active Substance: QUETIAPINE
     Indication: Schizoaffective disorder bipolar type
     Dosage: 800 MILLIGRAM, ONCE A DAY
     Route: 065
  35. CARBAMAZEPINE [Concomitant]
     Active Substance: CARBAMAZEPINE
     Indication: Product used for unknown indication
     Dosage: UNK
     Route: 065

REACTIONS (19)
  - Aggression [Recovering/Resolving]
  - Antipsychotic drug level increased [Recovered/Resolved]
  - Condition aggravated [Recovering/Resolving]
  - Delirium [Recovering/Resolving]
  - Disorientation [Recovering/Resolving]
  - Drug interaction [Recovered/Resolved]
  - Drug level increased [Recovering/Resolving]
  - Irritability [Recovering/Resolving]
  - Obesity [Recovering/Resolving]
  - Orthostatic hypotension [Recovering/Resolving]
  - Sedation [Recovering/Resolving]
  - Tardive dyskinesia [Recovering/Resolving]
  - Somnolence [Recovering/Resolving]
  - Sternal fracture [Recovering/Resolving]
  - Tremor [Recovering/Resolving]
  - Vertigo [Recovering/Resolving]
  - Weight decreased [Recovering/Resolving]
  - Weight increased [Recovering/Resolving]
  - Labelled drug-drug interaction medication error [Unknown]
